FAERS Safety Report 8592986-9 (Version None)
Quarter: 2012Q3

REPORT INFORMATION
  Report Type: 
  Country: None (occurrence: None)
  Receive Date: 20120814
  Receipt Date: 19960515
  Transmission Date: 20120928
  Serious: Yes (Death)
  Sender: FDA-Public Use
  Company Number: US-ROCHE-1100890

PATIENT
  Sex: Female

DRUGS (7)
  1. ACTIVASE [Suspect]
     Indication: MYOCARDIAL INFARCTION
  2. LIDOCAINE [Concomitant]
  3. HEPARIN [Concomitant]
  4. INTROPIN [Concomitant]
  5. CALAN [Concomitant]
  6. DIGOXIN [Concomitant]
  7. VALIUM [Concomitant]

REACTIONS (1)
  - DEATH [None]
